FAERS Safety Report 5957192-2 (Version None)
Quarter: 2008Q4

REPORT INFORMATION
  Report Type: 
  Country: None (occurrence: None)
  Receive Date: 20081106
  Receipt Date: 20071218
  Transmission Date: 20090506
  Serious: Yes (Other)
  Sender: FDA-Public Use
  Company Number: US200712003722

PATIENT
  Sex: Female

DRUGS (2)
  1. PROZAC [Suspect]
  2. EFFEXOR [Concomitant]

REACTIONS (1)
  - MANIA [None]
